FAERS Safety Report 5532157-3 (Version None)
Quarter: 2007Q4

REPORT INFORMATION
  Report Type: 
  Country: None (occurrence: None)
  Receive Date: 20071203
  Receipt Date: 20071119
  Transmission Date: 20080405
  Serious: Yes (Life-Threatening, Hospitalization)
  Sender: FDA-Public Use
  Company Number: GB-RANBAXY-2007RR-11599

PATIENT

DRUGS (8)
  1. SIMVASTATIN [Suspect]
     Indication: HYPERCHOLESTEROLAEMIA
     Dosage: 40 MG, QD
     Route: 048
     Dates: start: 20050711
  2. DISPERSIBLE ASPIRIN 75MG TABLETS BP [Concomitant]
     Indication: CARDIOVASCULAR EVENT PROPHYLAXIS
     Dosage: 75 MG, UNK
     Dates: start: 20040116
  3. BECLOMETHASONE DIPROPIONATE [Concomitant]
     Indication: ASTHMA
     Dosage: UNK
     Dates: start: 20041013
  4. CLOPIDOGREL BISULFATE [Concomitant]
     Indication: CARDIOVASCULAR EVENT PROPHYLAXIS
     Dosage: 75 MG, UNK
     Dates: start: 20070808
  5. DOXAZOSIN MESYLATE [Concomitant]
     Indication: HYPERTENSION
     Dosage: 8 MG, UNK
     Dates: start: 20040519
  6. GTN-S [Concomitant]
     Indication: ANGINA PECTORIS
     Dosage: UNK
     Dates: start: 20020121
  7. NICORANDIL [Concomitant]
     Indication: MYOCARDIAL ISCHAEMIA
     Dosage: 20 MG, UNK
     Dates: start: 20070522
  8. RAMIPRIL 5 MG CAPSULES [Concomitant]
     Indication: HYPERTENSION
     Dosage: 5 MG, UNK
     Dates: start: 20070411

REACTIONS (1)
  - MYOCARDIAL INFARCTION [None]
